FAERS Safety Report 9216309 (Version 1)
Quarter: 2013Q2

REPORT INFORMATION
  Report Type: Spontaneous
  Country: IN (occurrence: None)
  Receive Date: 20130403
  Receipt Date: 20130403
  Transmission Date: 20140414
  Serious: Yes (Other)
  Sender: FDA-Public Use
  Company Number: IPC201303-000111

PATIENT
  Sex: Female

DRUGS (2)
  1. HYDROXYCHLOROQUINE SULFATE (HYDROXYCHLOROQUINE SULFATE) (HYDROXYCHLOROQUINE SULFATE) [Suspect]
  2. CHLOROQUINE PHOSPHATE [Suspect]
     Dosage: CUMULATIVE DOSE: 56.25 GRAMS

REACTIONS (4)
  - Ocular toxicity [None]
  - Visual acuity reduced [None]
  - Retinal pigmentation [None]
  - Headache [None]
